FAERS Safety Report 5748557-2 (Version None)
Quarter: 2008Q2

REPORT INFORMATION
  Report Type: 
  Country: None (occurrence: None)
  Receive Date: 20080523
  Receipt Date: 20080514
  Transmission Date: 20081010
  Serious: Yes (Other)
  Sender: FDA-Public Use
  Company Number: CA-PFIZER INC-2008042115

PATIENT
  Age: 63 Year
  Sex: Female

DRUGS (7)
  1. AROMASIN [Suspect]
     Dates: start: 20080224, end: 20080101
  2. ZANTAC [Concomitant]
     Route: 048
  3. RIVOTRIL [Concomitant]
     Route: 048
  4. CALCIUM [Concomitant]
     Route: 048
  5. FOSAMAX [Concomitant]
     Route: 048
  6. SYNTHROID [Concomitant]
     Route: 048
  7. TRAMADOL HYDROCHLORIDE AND ACETAMINOPHEN [Concomitant]
     Route: 048

REACTIONS (2)
  - ABDOMINAL PAIN UPPER [None]
  - HEPATIC ENZYME INCREASED [None]
